FAERS Safety Report 8768296 (Version 1)
Quarter: 2012Q4

REPORT INFORMATION
  Report Type: 
  Country: BE (occurrence: BE)
  Receive Date: 20120905
  Receipt Date: 20120905
  Transmission Date: 20130627
  Serious: Yes (Other)
  Sender: FDA-Public Use
  Company Number: BE-ROCHE-1114843

PATIENT
  Age: 76 Year
  Sex: Female
  Weight: 87 kg

DRUGS (9)
  1. XELODA [Suspect]
     Indication: BREAST CANCER
     Route: 048
     Dates: start: 20120223, end: 20120503
  2. MORPHINE [Concomitant]
     Indication: ANALGESIC THERAPY
     Route: 048
  3. MORPHINE [Concomitant]
     Route: 048
  4. DAFALGAN [Concomitant]
     Indication: ANALGESIC THERAPY
     Route: 048
  5. MIRTAZAPINE [Concomitant]
     Indication: UNEVALUABLE EVENT
     Route: 060
  6. LYSANXIA [Concomitant]
     Indication: UNEVALUABLE EVENT
     Route: 048
  7. PANTOMED (PANTOPRAZOLE) [Concomitant]
     Route: 065
  8. LYRICA [Concomitant]
     Indication: NEURALGIA
     Route: 048
  9. PYRIDOXINE [Concomitant]
     Indication: PROPHYLAXIS
     Route: 048

REACTIONS (2)
  - Disease progression [Unknown]
  - Tremor [Recovering/Resolving]
